FAERS Safety Report 9473286 (Version 1)
Quarter: 2013Q3

REPORT INFORMATION
  Report Type: Spontaneous
  Country: US (occurrence: US)
  Receive Date: 20130823
  Receipt Date: 20130823
  Transmission Date: 20140515
  Serious: No
  Sender: FDA-Public Use
  Company Number: US-BRISTOL-MYERS SQUIBB COMPANY-18846089

PATIENT
  Age: 49 Year
  Sex: Female

DRUGS (18)
  1. SPRYCEL (CML) TABS 100 MG [Suspect]
     Dates: start: 20130409
  2. INSULIN [Concomitant]
  3. NOVOLOG [Concomitant]
  4. SYNTHROID [Concomitant]
  5. SIMVASTATIN [Concomitant]
  6. PREDNISONE [Concomitant]
  7. TRAMADOL [Concomitant]
  8. FUROSEMIDE [Concomitant]
  9. AMBIEN [Concomitant]
  10. PRO-AIR [Concomitant]
  11. ALBUTEROL [Concomitant]
  12. SPIRIVA [Concomitant]
  13. SERTRALINE HCL [Concomitant]
  14. ALPRAZOLAM [Concomitant]
  15. SPIRONOLACTONE [Concomitant]
  16. METOLAZONE [Concomitant]
  17. LOSARTAN [Concomitant]
  18. OXYGEN [Concomitant]

REACTIONS (2)
  - Diarrhoea [Unknown]
  - Dizziness [Unknown]
